FAERS Safety Report 10169293 (Version 2)
Quarter: 2014Q3

REPORT INFORMATION
  Report Type: Report from Study
  Country: CA (occurrence: CA)
  Receive Date: 20140513
  Receipt Date: 20140807
  Transmission Date: 20150326
  Serious: Yes (Death, Hospitalization)
  Sender: FDA-Public Use
  Company Number: CA-SA-2014SA060976

PATIENT
  Age: 39 Year
  Sex: Female
  Weight: 60 kg

DRUGS (4)
  1. 5-FU [Concomitant]
     Active Substance: FLUOROURACIL
     Indication: BREAST CANCER
     Dates: start: 20100806, end: 20100827
  2. DOCETAXEL [Suspect]
     Active Substance: DOCETAXEL
     Indication: BREAST CANCER
     Route: 042
     Dates: start: 20100806, end: 20100827
  3. CYCLOPHOSPHAMIDE. [Concomitant]
     Active Substance: CYCLOPHOSPHAMIDE
     Indication: BREAST CANCER
     Dates: start: 20100806, end: 20100827
  4. EPIRUBICIN [Concomitant]
     Active Substance: EPIRUBICIN
     Indication: BREAST CANCER
     Dates: start: 20100806, end: 20100827

REACTIONS (7)
  - Septic shock [Fatal]
  - Pneumonia [Fatal]
  - Febrile neutropenia [Fatal]
  - Pleural effusion [Fatal]
  - Respiratory failure [Fatal]
  - Diffuse alveolar damage [Fatal]
  - Barotrauma [Fatal]

NARRATIVE: CASE EVENT DATE: 20100906
